FAERS Safety Report 6687630-1 (Version None)
Quarter: 2010Q2

REPORT INFORMATION
  Report Type: 
  Country: None (occurrence: None)
  Receive Date: 20100415
  Receipt Date: 20100407
  Transmission Date: 20101027
  Serious: Yes (Life-Threatening)
  Sender: FDA-Public Use
  Company Number: 009356

PATIENT
  Age: 61 Year
  Sex: Male

DRUGS (4)
  1. PLETAL [Suspect]
     Indication: CEREBRAL INFARCTION
     Dosage: 100 MG, BID, ORAL
     Route: 048
     Dates: end: 20100405
  2. PLETAL [Suspect]
     Indication: CEREBRAL INFARCTION
     Dosage: 100 MG, BID, ORAL
     Route: 048
     Dates: start: 20091101
  3. WARFARIN POTASSIUM (WARFARIN POTASSIUM) [Concomitant]
  4. NIFLEC (POTASSIUM CHLORIDE, SODIUM BICARBONATE, SODIUM CHLORIDE, SODIU [Concomitant]

REACTIONS (5)
  - DIARRHOEA [None]
  - ELECTROLYTE IMBALANCE [None]
  - RENAL FAILURE [None]
  - VENTRICULAR TACHYCARDIA [None]
  - VOMITING [None]
